FAERS Safety Report 20025382 (Version 1)
Quarter: 2021Q4

REPORT INFORMATION
  Report Type: Report from Study
  Country: US (occurrence: US)
  Receive Date: 20211102
  Receipt Date: 20211102
  Transmission Date: 20220303
  Serious: Yes (Other)
  Sender: FDA-Public Use
  Company Number: US-JAZZ-2021-US-016772

PATIENT
  Sex: Female
  Weight: 59.41 kg

DRUGS (17)
  1. XYREM [Suspect]
     Active Substance: SODIUM OXYBATE
     Indication: Narcolepsy
     Dosage: 2 GRAM, BID
     Route: 048
     Dates: start: 201806, end: 201806
  2. XYREM [Suspect]
     Active Substance: SODIUM OXYBATE
     Indication: Cataplexy
     Dosage: DOSE AJDUSTMENT
     Route: 048
     Dates: start: 201806, end: 201812
  3. XYREM [Suspect]
     Active Substance: SODIUM OXYBATE
     Dosage: 4 GRAM, BID
     Route: 048
     Dates: start: 201812, end: 202105
  4. PRAVASTATIN [Suspect]
     Active Substance: PRAVASTATIN
     Indication: Hyperlipidaemia
     Dosage: UNK
  5. BIOTIN [Concomitant]
     Active Substance: BIOTIN
  6. BYSTOLIC [Concomitant]
     Active Substance: NEBIVOLOL HYDROCHLORIDE
  7. COENZYME Q10 [Concomitant]
     Active Substance: DIETARY SUPPLEMENT\UBIDECARENONE
  8. DULOXETINE [Concomitant]
     Active Substance: DULOXETINE
  9. FLUTICASONE PROPIONATE [Concomitant]
     Active Substance: FLUTICASONE PROPIONATE
  10. GABAPENTIN [Concomitant]
     Active Substance: GABAPENTIN
  11. INSULIN NOS [Concomitant]
     Active Substance: INSULIN NOS
  12. METFORMIN [Concomitant]
     Active Substance: METFORMIN HYDROCHLORIDE
  13. METOCLOPRAMIDE HYDROCHLORIDE [Concomitant]
     Active Substance: METOCLOPRAMIDE HYDROCHLORIDE
  14. OMEGA-3 FATTY ACIDS [Concomitant]
     Active Substance: OMEGA-3 FATTY ACIDS
  15. PRASUGREL [Concomitant]
     Active Substance: PRASUGREL
  16. PREGABALIN [Concomitant]
     Active Substance: PREGABALIN
  17. TRESIBA [Concomitant]
     Active Substance: INSULIN DEGLUDEC

REACTIONS (12)
  - Hypergammaglobulinaemia [Recovering/Resolving]
  - Primary biliary cholangitis [Recovering/Resolving]
  - Urinary tract infection [Unknown]
  - Bursitis [Not Recovered/Not Resolved]
  - Abdominal discomfort [Not Recovered/Not Resolved]
  - Dysphonia [Not Recovered/Not Resolved]
  - Dry eye [Unknown]
  - Haematuria [Recovered/Resolved]
  - Myalgia [Not Recovered/Not Resolved]
  - Vision blurred [Unknown]
  - Coronary artery disease [Unknown]
  - Coronary ostial stenosis [Unknown]
